FAERS Safety Report 23987371 (Version 1)
Quarter: 2024Q2

REPORT INFORMATION
  Report Type: Spontaneous
  Country: US (occurrence: US)
  Receive Date: 20240618
  Receipt Date: 20240618
  Transmission Date: 20240716
  Serious: No
  Sender: FDA-Public Use
  Company Number: US-SANDOZ-SDZ2024US058422

PATIENT
  Sex: Male

DRUGS (1)
  1. ALBUTEROL SULFATE [Suspect]
     Active Substance: ALBUTEROL SULFATE
     Indication: Product used for unknown indication
     Dosage: DOSE=90 MCG/DOS FREQ= ROUTE= EXPDT=20251231
     Route: 055
     Dates: start: 20240531

REACTIONS (4)
  - Therapeutic product effect delayed [Unknown]
  - Device dispensing error [Unknown]
  - Incorrect dose administered [Unknown]
  - Product complaint [Unknown]
